FAERS Safety Report 5104335-9 (Version None)
Quarter: 2006Q3

REPORT INFORMATION
  Report Type: 
  Country: None (occurrence: None)
  Receive Date: 20060912
  Receipt Date: 20060912
  Transmission Date: 20061208
  Serious: Yes (Hospitalization)
  Sender: FDA-Public Use
  Company Number: None

PATIENT
  Sex: Male

DRUGS (10)
  1. WARFARIN SODIUM [Suspect]
     Indication: ATRIAL FIBRILLATION
     Dosage: 7.5 MG   DAILY   PO
     Route: 048
  2. ASPIRIN [Concomitant]
  3. CALCIUM GLUCONATE [Concomitant]
  4. LISINOPRIL [Concomitant]
  5. METOPOLOL [Concomitant]
  6. OMEPRAZOLE [Concomitant]
  7. SIMVASTATIN [Concomitant]
  8. APAP TAB [Concomitant]
  9. FERROUS SULFATE TAB [Concomitant]
  10. TRAMADOL HCL [Concomitant]

REACTIONS (1)
  - SUBDURAL HAEMATOMA [None]
